FAERS Safety Report 15670700 (Version 1)
Quarter: 2018Q4

REPORT INFORMATION
  Report Type: Spontaneous
  Country: US (occurrence: US)
  Receive Date: 20181129
  Receipt Date: 20181129
  Transmission Date: 20190205
  Serious: Yes (Other)
  Sender: FDA-Public Use
  Company Number: US-ASTRAZENECA-2009SE17706

PATIENT
  Age: 67 Year
  Sex: Female

DRUGS (2)
  1. SYMBICORT [Suspect]
     Active Substance: BUDESONIDE\FORMOTEROL FUMARATE DIHYDRATE
     Indication: ASTHMA
     Route: 055
  2. PULMICORT FLEXHALER [Suspect]
     Active Substance: BUDESONIDE
     Indication: ASTHMA
     Route: 055

REACTIONS (8)
  - Aneurysm [Unknown]
  - Gastrooesophageal reflux disease [Unknown]
  - Urticaria [Unknown]
  - Asthma [Unknown]
  - Subarachnoid haemorrhage [Unknown]
  - Weight increased [Unknown]
  - Body height decreased [Unknown]
  - Dysstasia [Unknown]

NARRATIVE: CASE EVENT DATE: 20110123
